FAERS Safety Report 22116887 (Version 1)
Quarter: 2023Q1

REPORT INFORMATION
  Report Type: Spontaneous
  Country: CA (occurrence: CA)
  Receive Date: 20230320
  Receipt Date: 20230320
  Transmission Date: 20230417
  Serious: Yes (Hospitalization)
  Sender: FDA-Public Use
  Company Number: CA-APIL-2308345US

PATIENT
  Sex: Female
  Weight: 3 kg

DRUGS (4)
  1. LEVOMILNACIPRAN HYDROCHLORIDE [Suspect]
     Active Substance: LEVOMILNACIPRAN HYDROCHLORIDE
     Indication: Depression
     Dosage: 120 MG, QD
     Route: 048
  2. BUPROPION [Suspect]
     Active Substance: BUPROPION
     Indication: Depression
     Dosage: 450 MG, QD
     Route: 048
  3. SERTRALINE [Suspect]
     Active Substance: SERTRALINE HYDROCHLORIDE
     Indication: Depression
     Dosage: 200 MG, QD
     Route: 048
  4. QUETIAPINE [Suspect]
     Active Substance: QUETIAPINE
     Indication: Depression
     Dosage: 300 MG, QD
     Route: 048

REACTIONS (6)
  - Thrombosis [Recovered/Resolved]
  - Positive airway pressure therapy [Recovered/Resolved]
  - Encephalopathy [Recovered/Resolved]
  - Foetal exposure during pregnancy [Unknown]
  - Hypertonia [Recovered/Resolved]
  - Seizure [Recovered/Resolved]
